FAERS Safety Report 16973312 (Version 2)
Quarter: 2020Q1

REPORT INFORMATION
  Report Type: Spontaneous
  Country: FR (occurrence: FR)
  Receive Date: 20191030
  Receipt Date: 20200106
  Transmission Date: 20200409
  Serious: Yes (Other)
  Sender: FDA-Public Use
  Company Number: FR-TEVA-2019-FR-1129238

PATIENT
  Age: 22 Year
  Sex: Male
  Weight: 64 kg

DRUGS (9)
  1. OXYNORM [Concomitant]
     Active Substance: OXYCODONE HYDROCHLORIDE
  2. VERSATIS 5 %, EMPLATRE MEDICAMENTEUX [Concomitant]
     Active Substance: LIDOCAINE
  3. URBANYL [Concomitant]
     Active Substance: CLOBAZAM
  4. POLARAMINE [Concomitant]
     Active Substance: DEXCHLORPHENIRAMINE MALEATE
  5. PREGABALINE [Suspect]
     Active Substance: PREGABALIN
     Indication: NEURALGIA
     Dosage: 450 MILLIGRAM PER DAY
     Route: 048
     Dates: start: 20190504, end: 20190910
  6. NEFOPAM (CHLORHYDRATE DE) [Concomitant]
     Active Substance: NEFOPAM HYDROCHLORIDE
  7. DAFALGAN [Concomitant]
     Active Substance: ACETAMINOPHEN
  8. SERESTA [Concomitant]
     Active Substance: OXAZEPAM
  9. TRAMADOL BASE [Concomitant]
     Active Substance: TRAMADOL

REACTIONS (1)
  - Neutropenia [Recovering/Resolving]

NARRATIVE: CASE EVENT DATE: 20190910
